FAERS Safety Report 9957001 (Version 1)
Quarter: 2014Q1

REPORT INFORMATION
  Report Type: Report from Study
  Country: US (occurrence: US)
  Receive Date: 20140304
  Receipt Date: 20140304
  Transmission Date: 20141002
  Serious: No
  Sender: FDA-Public Use
  Company Number: US-ABBVIE-13P-163-1099368-00

PATIENT
  Age: 62 Year
  Sex: Male

DRUGS (12)
  1. HUMIRA [Suspect]
     Indication: CROHN^S DISEASE
     Route: 058
     Dates: start: 20130316, end: 20130519
  2. HUMIRA [Suspect]
     Route: 058
     Dates: start: 20130519
  3. ATENOLOL CHLORTHALIDONE [Concomitant]
     Indication: BLOOD PRESSURE
     Dosage: 50/25 TABS, 1 PER DAY
  4. OMEPRAZOLE [Concomitant]
     Indication: DYSPEPSIA
     Dosage: 1 DAILY
  5. OMEPRAZOLE [Concomitant]
     Indication: GASTROOESOPHAGEAL REFLUX DISEASE
  6. METFORMIN [Concomitant]
     Indication: GLUCOSE TOLERANCE IMPAIRED
     Dosage: 2 PER DAY PRESCRIBED, ONLY TAKES 1
  7. POTASSIUM [Concomitant]
     Indication: BLOOD PRESSURE ABNORMAL
  8. AZATHIOPRINE [Concomitant]
     Indication: PRODUCT USED FOR UNKNOWN INDICATION
     Dosage: 50MG DAILY
  9. PRAVASTATIN [Concomitant]
     Indication: BLOOD CHOLESTEROL
     Dosage: 40MG DAILY
  10. AMLODIPINE BESYLATE [Concomitant]
     Indication: VASCULAR INSUFFICIENCY
     Dosage: 10MG DAILY
  11. AMLODIPINE BESYLATE [Concomitant]
     Indication: CARDIAC DISORDER
  12. PREDNISONE [Concomitant]
     Indication: PRODUCT USED FOR UNKNOWN INDICATION
     Dosage: 40MG DAILY

REACTIONS (1)
  - Impaired healing [Unknown]
